FAERS Safety Report 13601477 (Version 1)
Quarter: 2017Q2

REPORT INFORMATION
  Report Type: Spontaneous
  Country: US (occurrence: US)
  Receive Date: 20170601
  Receipt Date: 20170601
  Transmission Date: 20170830
  Serious: No
  Sender: FDA-Public Use
  Company Number: None

PATIENT
  Age: 60 Year
  Sex: Male
  Weight: 55.84 kg

DRUGS (10)
  1. SIMVASTATIN. [Concomitant]
     Active Substance: SIMVASTATIN
  2. DUO-NEB NEBULIZER [Concomitant]
  3. LISINOPRIL/HCTZ [Concomitant]
     Active Substance: HYDROCHLOROTHIAZIDE\LISINOPRIL
  4. PROZAC [Concomitant]
     Active Substance: FLUOXETINE HYDROCHLORIDE
  5. MIRTAZAPINE 15MG TAB (TAKE ? TAB) [Suspect]
     Active Substance: MIRTAZAPINE
     Indication: PRODUCT USED FOR UNKNOWN INDICATION
     Dosage: ? TAB ONCE DAILY 3 DAYS, TABLET
     Dates: start: 20170505, end: 20170508
  6. LOW DOSE ASPIRIN [Concomitant]
     Active Substance: ASPIRIN
  7. SYMBACORT [Concomitant]
  8. IPRAPROPRAMINE [Concomitant]
  9. ALBUTEROL. [Concomitant]
     Active Substance: ALBUTEROL
  10. MULTI-VITAMIN (CENTRUM SILVER) [Concomitant]

REACTIONS (2)
  - Therapy cessation [None]
  - Abnormal dreams [None]

NARRATIVE: CASE EVENT DATE: 20170505
